FAERS Safety Report 13064519 (Version 4)
Quarter: 2017Q1

REPORT INFORMATION
  Report Type: Report from Study
  Country: US (occurrence: US)
  Receive Date: 20161227
  Receipt Date: 20170227
  Transmission Date: 20170428
  Serious: Yes (Other)
  Sender: FDA-Public Use
  Company Number: US-MALLINCKRODT-T201606055

PATIENT
  Sex: Female

DRUGS (5)
  1. REPOSITORY CORTICOTROPIN INJECTION [Suspect]
     Active Substance: CORTICOTROPIN
     Dosage: 80 U 2X WEEKLY
     Route: 058
     Dates: start: 20150508, end: 201611
  2. REPOSITORY CORTICOTROPIN INJECTION [Suspect]
     Active Substance: CORTICOTROPIN
     Indication: RHEUMATOID ARTHRITIS
     Dosage: 80 UNITS; ONCE PER WEEK
     Route: 058
     Dates: start: 20131113, end: 20161124
  3. REPOSITORY CORTICOTROPIN INJECTION [Suspect]
     Active Substance: CORTICOTROPIN
     Dosage: 80 UNITS / 1 ML, 1 TIME WEEKLY
     Route: 058
     Dates: start: 20131113, end: 20161018
  4. REPOSITORY CORTICOTROPIN INJECTION [Suspect]
     Active Substance: CORTICOTROPIN
     Dosage: 80 UNITS BIW
     Route: 058
     Dates: start: 2014
  5. REPOSITORY CORTICOTROPIN INJECTION [Suspect]
     Active Substance: CORTICOTROPIN
     Dosage: 80 UNITS, TWICE A WEEK
     Route: 058
     Dates: start: 20131113, end: 2015

REACTIONS (6)
  - Diverticulitis [Unknown]
  - Blood glucose increased [Recovering/Resolving]
  - Infection [Unknown]
  - Influenza [Unknown]
  - Asthenia [Unknown]
  - Abasia [Unknown]

NARRATIVE: CASE EVENT DATE: 2016
